FAERS Safety Report 22045692 (Version 1)
Quarter: 2023Q1

REPORT INFORMATION
  Report Type: Other
  Country: DE (occurrence: None)
  Receive Date: 20230228
  Receipt Date: 20230228
  Transmission Date: 20230417
  Serious: Yes (Hospitalization)
  Sender: FDA-Public Use
  Company Number: DE-ROCHE-2312053

PATIENT
  Age: 25 Year
  Sex: Female

DRUGS (6)
  1. OCREVUS [Suspect]
     Active Substance: OCRELIZUMAB
     Indication: Relapsing-remitting multiple sclerosis
     Route: 042
     Dates: start: 20190321
  2. OCREVUS [Suspect]
     Active Substance: OCRELIZUMAB
     Route: 042
     Dates: start: 20190404
  3. RAMIPRIL [Concomitant]
     Active Substance: RAMIPRIL
  4. DULOXETINE [Concomitant]
     Active Substance: DULOXETINE
  5. PREGABALIN [Concomitant]
     Active Substance: PREGABALIN
  6. BACLOFEN [Concomitant]
     Active Substance: BACLOFEN

REACTIONS (5)
  - COVID-19 [Recovered/Resolved]
  - Headache [Recovered/Resolved]
  - Fatigue [Recovered/Resolved]
  - Dyspnoea [Recovering/Resolving]
  - Fatigue [Not Recovered/Not Resolved]

NARRATIVE: CASE EVENT DATE: 20190321
